FAERS Safety Report 8981131 (Version 5)
Quarter: 2014Q3

REPORT INFORMATION
  Report Type: Spontaneous
  Country: US (occurrence: US)
  Receive Date: 20121221
  Receipt Date: 20140711
  Transmission Date: 20150326
  Serious: Yes (Disabling, Other)
  Sender: FDA-Public Use
  Company Number: US-009507513-1212USA007556

PATIENT
  Sex: Male
  Weight: 81.18 kg

DRUGS (8)
  1. PROSCAR [Suspect]
     Active Substance: FINASTERIDE
     Indication: ALOPECIA
  2. FINASTERIDE. [Suspect]
     Active Substance: FINASTERIDE
     Indication: ALOPECIA
     Dosage: 5 MG, UNK
     Route: 048
     Dates: start: 2005, end: 2011
  3. WELLBUTRIN [Concomitant]
     Active Substance: BUPROPION HYDROCHLORIDE
     Indication: STRESS
  4. FINASTERIDE. [Suspect]
     Active Substance: FINASTERIDE
     Dosage: 5 MG, UNK
     Route: 048
     Dates: start: 20080507, end: 20091221
  5. WELLBUTRIN [Concomitant]
     Active Substance: BUPROPION HYDROCHLORIDE
     Indication: DEPRESSION
     Dosage: UNK
     Route: 048
     Dates: start: 2000, end: 2005
  6. PROSCAR [Suspect]
     Active Substance: FINASTERIDE
     Indication: ANDROGENETIC ALOPECIA
     Dosage: 5 MG, UNK
     Route: 048
     Dates: start: 2005, end: 2011
  7. PROPECIA [Suspect]
     Active Substance: FINASTERIDE
     Indication: ANDROGENETIC ALOPECIA
     Dosage: UNK MG, UNK
     Route: 048
     Dates: start: 20040128
  8. FINASTERIDE. [Suspect]
     Active Substance: FINASTERIDE
     Indication: ANDROGENETIC ALOPECIA
     Dosage: 1 MG, UNK
     Route: 048
     Dates: start: 2005, end: 2011

REACTIONS (24)
  - Anxiety [Unknown]
  - Haemorrhoids [Unknown]
  - Cognitive disorder [Not Recovered/Not Resolved]
  - Drug administration error [Unknown]
  - Solar lentigo [Unknown]
  - Loss of libido [Unknown]
  - Erectile dysfunction [Unknown]
  - Melanocytic naevus [Unknown]
  - Otitis media [Unknown]
  - Semen volume decreased [Unknown]
  - Depression [Not Recovered/Not Resolved]
  - Micrographic skin surgery [Unknown]
  - Haemangioma [Unknown]
  - Stasis dermatitis [Unknown]
  - Micrographic skin surgery [Unknown]
  - Keloid scar [Unknown]
  - Blood cholesterol increased [Unknown]
  - Seborrhoeic keratosis [Unknown]
  - Actinic keratosis [Unknown]
  - Basal cell carcinoma [Unknown]
  - Sexual dysfunction [Not Recovered/Not Resolved]
  - Melanocytic naevus [Unknown]
  - Sinusitis [Unknown]
  - Blood testosterone decreased [Unknown]

NARRATIVE: CASE EVENT DATE: 2002
